FAERS Safety Report 10378638 (Version 1)
Quarter: 2014Q1

REPORT INFORMATION
  Report Type: Spontaneous
  Country: US (occurrence: None)
  Receive Date: 20140306
  Receipt Date: 20140306
  Transmission Date: 20141002
  Serious: Yes (Hospitalization)
  Sender: FDA-Public Use
  Company Number: 163-21880-13023219

PATIENT
  Age: 73 Year
  Sex: Male
  Weight: 88 kg

DRUGS (21)
  1. REVLIMID (LENALIDOMIDE) (25 MILLIGRAM, CAPSULES) [Suspect]
     Indication: PLASMA CELL MYELOMA
     Dosage: 25 MG, 21 IN 21 D, PO
     Route: 048
     Dates: start: 20130122
  2. ACYCLOVIR [Concomitant]
  3. ALLOPURINOL SODIUM [Concomitant]
  4. COUMADIN (WARFARIN SODIUM) [Concomitant]
  5. METOPROLOL SUCCINATE [Concomitant]
  6. SIMVASTATIN [Concomitant]
  7. TRIAMTERENE-HCTZ (DYAZIDE) [Concomitant]
  8. VITAMIN B12 (CYANOCOBALAMIN) [Concomitant]
  9. DEXAMETHASONE [Concomitant]
  10. LISINOPRIL [Concomitant]
  11. MEDROL DOSE PAK (METHYPREDNISOLONE) [Concomitant]
  12. COLCHINE [Concomitant]
  13. KEFLEX (CEFALEXIN MONOHYDRATE) [Concomitant]
  14. PREDNISONE [Concomitant]
  15. SAW PALMETTO (SERENOA REPENS) [Concomitant]
  16. FLU VACCINE (INFLUENZA VACCINE) [Concomitant]
  17. SOL MEDROL [Concomitant]
  18. DOXYCYCLINE HYCLATE [Concomitant]
  19. HYDROCHLOROTHIAZIDE [Concomitant]
  20. ATIVAN (LORAZEPAM) [Concomitant]
  21. ROCEPHIN (CEFTRIAXONE SODIUM) [Concomitant]

REACTIONS (3)
  - Gout [None]
  - Cellulitis [None]
  - Deep vein thrombosis [None]
